FAERS Safety Report 11773243 (Version 1)
Quarter: 2015Q4

REPORT INFORMATION
  Report Type: Spontaneous
  Country: US (occurrence: US)
  Receive Date: 20151124
  Receipt Date: 20151124
  Transmission Date: 20160304
  Serious: No
  Sender: FDA-Public Use
  Company Number: US-BAYER-2015-474744

PATIENT
  Age: 61 Year
  Sex: Female
  Weight: 99.77 kg

DRUGS (7)
  1. VITAMIN E [Concomitant]
     Active Substance: .ALPHA.-TOCOPHEROL
     Dosage: UNK
  2. VITAMIN B12 [Concomitant]
     Active Substance: CYANOCOBALAMIN
     Dosage: UNK
  3. SERTRALINE [Concomitant]
     Active Substance: SERTRALINE HYDROCHLORIDE
     Dosage: 100 MG, UNK
  4. CENTRUM [Concomitant]
     Active Substance: VITAMINS
     Dosage: UNK
  5. PRILOSEC [Concomitant]
     Active Substance: OMEPRAZOLE MAGNESIUM
     Dosage: UNK
  6. OXYTROL FOR WOMEN [Suspect]
     Active Substance: OXYBUTYNIN
     Dosage: 1 DF, OW
     Route: 061
     Dates: start: 2013, end: 20151123
  7. OMEGA-3 FATTY ACIDS [Concomitant]
     Active Substance: OMEGA-3 FATTY ACIDS
     Dosage: UNK

REACTIONS (2)
  - Expired product administered [Unknown]
  - Product use issue [Unknown]
